FAERS Safety Report 4520057-7 (Version None)
Quarter: 2004Q4

REPORT INFORMATION
  Report Type: 
  Country: None (occurrence: None)
  Receive Date: 20041029
  Receipt Date: 20040803
  Transmission Date: 20050328
  Serious: No
  Sender: FDA-Public Use
  Company Number: 2004-119094-NL

PATIENT
  Age: 39 Year
  Sex: Female
  Weight: 77.3 kg

DRUGS (4)
  1. NUVARING [Suspect]
     Indication: CONTRACEPTION
     Dosage: DF DAILY VAGINAL
     Route: 067
     Dates: start: 20040201
  2. NUVARING [Suspect]
     Indication: MENSTRUAL DISORDER
     Dosage: DF DAILY VAGINAL
     Route: 067
     Dates: start: 20040201
  3. FIORICET [Concomitant]
  4. MULTI-VITAMINS [Concomitant]

REACTIONS (1)
  - METRORRHAGIA [None]
